FAERS Safety Report 16879109 (Version 1)
Quarter: 2019Q4

REPORT INFORMATION
  Report Type: Spontaneous
  Country: US (occurrence: US)
  Receive Date: 20191003
  Receipt Date: 20191003
  Transmission Date: 20200122
  Serious: No
  Sender: FDA-Public Use
  Company Number: US-AMGEN-USASP2019159529

PATIENT
  Age: 75 Year
  Sex: Female

DRUGS (14)
  1. PROLIA [Suspect]
     Active Substance: DENOSUMAB
     Indication: OSTEOPOROSIS
     Dosage: 60 MILLIGRAM, Q6MO
     Route: 065
     Dates: start: 20181019
  2. BIOPERINE [Concomitant]
     Dosage: UNK UNK, QD
  3. POTASSIUM [Concomitant]
     Active Substance: POTASSIUM
     Indication: MUSCLE SPASMS
     Dosage: 99 MILLIGRAM
  4. CRANBERRY EXTRACT [VACCINIUM MACROCARPON] [Concomitant]
     Indication: URINARY TRACT DISORDER
     Dosage: 650 MILLIGRAM
  5. VITAMINS [Concomitant]
     Active Substance: VITAMINS
  6. RESVERATROL PLUS GRAPE SEED [Concomitant]
  7. TURMERIC [CURCUMA LONGA] [Concomitant]
     Dosage: 1000 MILLIGRAM, QD
  8. GLUCOSAMINE SULFATE [Concomitant]
     Active Substance: GLUCOSAMINE SULFATE
     Indication: ARTHRITIS
     Dosage: 1000 MILLIGRAM, BID
  9. VITAMIN C [Concomitant]
     Active Substance: ASCORBIC ACID
     Indication: NASOPHARYNGITIS
     Dosage: 500 MILLIGRAM
  10. VITAMIN B COMPLEX [Concomitant]
     Active Substance: CYANOCOBALAMIN\DEXPANTHENOL\NIACINAMIDE\PYRIDOXINE HYDROCHLORIDE\RIBOFLAVIN 5^-PHOSPHATE SODIUM\THIAMINE HYDROCHLORIDE\VITAMIN B COMPLEX
     Indication: MACROCYTOSIS
  11. CITRACAL + D [CALCIUM CITRATE;COLECALCIFEROL] [Concomitant]
     Active Substance: CALCIUM CITRATE\CHOLECALCIFEROL
     Dosage: 1200 MG WITH 1000 UNITS
  12. MAGNESIUM [Concomitant]
     Active Substance: MAGNESIUM
     Indication: BONE DISORDER
     Dosage: 400 MILLIGRAM
  13. CHOLESTIN [MONASCUS PURPUREUS] [Concomitant]
     Indication: BLOOD CHOLESTEROL ABNORMAL
     Dosage: 1200 MILLIGRAM, QD
  14. GARLIC (DEODORIZED) [Concomitant]
     Indication: CARDIAC DISORDER
     Dosage: 1000 MILLIGRAM

REACTIONS (4)
  - Joint injury [Unknown]
  - Pruritus [Unknown]
  - Contusion [Unknown]
  - Haemangioma [Unknown]

NARRATIVE: CASE EVENT DATE: 2019
